FAERS Safety Report 25896022 (Version 5)
Quarter: 2025Q4

REPORT INFORMATION
  Report Type: Spontaneous
  Country: CA (occurrence: CA)
  Receive Date: 20251008
  Receipt Date: 20251210
  Transmission Date: 20260118
  Serious: Yes (Other)
  Sender: PFIZER
  Company Number: CA-PFIZER INC-202500081060

PATIENT
  Age: 78 Year
  Sex: Male
  Weight: 75 kg

DRUGS (8)
  1. IXIFI [Suspect]
     Active Substance: INFLIXIMAB-QBTX
     Indication: Crohn^s disease
     Dosage: 375 MG, WEEK 0 (5 MG/KG WEEK 0, 2, 6 THEN EVERY 8 WEEKS)
     Route: 042
     Dates: start: 20250429
  2. IXIFI [Suspect]
     Active Substance: INFLIXIMAB-QBTX
     Dosage: 385 MG (AFTER 1 WEEK AND 6 DAYS (WEEK 2), WEEK 0, 2, 6, EVERY 8 WEEK)
     Route: 042
     Dates: start: 20250512
  3. IXIFI [Suspect]
     Active Substance: INFLIXIMAB-QBTX
     Dosage: 380 MG, WEEK 6 (5 MG/KG WEEK 0, 2, 6 THEN EVERY 8 WEEKS)
     Route: 042
     Dates: start: 20250609
  4. IXIFI [Suspect]
     Active Substance: INFLIXIMAB-QBTX
     Dosage: 5 MG/KG, EVERY 8 WEEK
     Route: 042
     Dates: start: 20250805
  5. IXIFI [Suspect]
     Active Substance: INFLIXIMAB-QBTX
     Dosage: 134.75 MG, 8 WEEKS AND 1 DAY (EVERY 8 WEEK)
     Route: 042
     Dates: start: 20251001
  6. IXIFI [Suspect]
     Active Substance: INFLIXIMAB-QBTX
     Dosage: 390 MG, 8 WEEKS(5 MG/KG, EVERY 8 WEEKS,W0,2,6 )
     Route: 042
     Dates: start: 20251124
  7. METHOTREXATE [Concomitant]
     Active Substance: METHOTREXATE
     Indication: Crohn^s disease
     Dosage: 1 DF
  8. PREDNISONE [Concomitant]
     Active Substance: PREDNISONE
     Dosage: 1 DF

REACTIONS (16)
  - Agitation [Recovering/Resolving]
  - Feeling cold [Recovering/Resolving]
  - Blood pressure fluctuation [Recovering/Resolving]
  - Uveitis [Recovered/Resolved]
  - Heart rate decreased [Recovering/Resolving]
  - Fall [Recovered/Resolved]
  - Erythema nodosum [Recovered/Resolved]
  - Skin irritation [Not Recovered/Not Resolved]
  - Arthralgia [Recovered/Resolved]
  - Anal fissure [Recovered/Resolved]
  - Erythema [Not Recovered/Not Resolved]
  - Pruritus [Not Recovered/Not Resolved]
  - Headache [Recovered/Resolved]
  - Drug hypersensitivity [Unknown]
  - Arthralgia [Recovered/Resolved]
  - Condition aggravated [Recovering/Resolving]

NARRATIVE: CASE EVENT DATE: 20250101
